FAERS Safety Report 8813694 (Version 5)
Quarter: 2016Q2

REPORT INFORMATION
  Report Type: Spontaneous
  Country: US (occurrence: US)
  Receive Date: 20120928
  Receipt Date: 20160621
  Transmission Date: 20160815
  Serious: Yes (Other)
  Sender: FDA-Public Use
  Company Number: US-ASTRAZENECA-2012SE74492

PATIENT
  Age: 65 Year
  Sex: Female
  Weight: 54.4 kg

DRUGS (55)
  1. HUMULIN NOS [Concomitant]
     Active Substance: INSULIN HUMAN
     Dates: start: 2005
  2. FOSAMAX [Concomitant]
     Active Substance: ALENDRONATE SODIUM
     Dosage: 70.0MG UNKNOWN
     Dates: start: 20070802
  3. MULTIVITAMIN [Concomitant]
     Active Substance: VITAMINS
     Dates: start: 20071228
  4. MECLIZINE [Concomitant]
     Active Substance: MECLIZINE HYDROCHLORIDE
     Dosage: 25.0MG UNKNOWN
     Dates: start: 20110309
  5. PSEUDOEPHEDRINE [Concomitant]
     Active Substance: PSEUDOEPHEDRINE
     Dosage: 30.0MG UNKNOWN
     Dates: start: 20101013
  6. FERROUS SULFATE. [Concomitant]
     Active Substance: FERROUS SULFATE
     Dosage: 325.0MG UNKNOWN
     Dates: start: 20110413
  7. DULCOLAX NOS [Concomitant]
     Active Substance: BISACODYL OR DOCUSATE SODIUM
     Dates: start: 20120114
  8. NEXIUM [Concomitant]
     Active Substance: ESOMEPRAZOLE MAGNESIUM
     Indication: GASTRIC PH DECREASED
     Dosage: 40.0MG UNKNOWN
     Dates: start: 20100323
  9. IBUPROFEN. [Concomitant]
     Active Substance: IBUPROFEN
     Dosage: 600.0MG UNKNOWN
     Dates: start: 20110413
  10. VITAMIN D [Concomitant]
     Active Substance: CHOLECALCIFEROL
     Dates: start: 20120114
  11. CRESTOR [Suspect]
     Active Substance: ROSUVASTATIN CALCIUM
     Indication: BLOOD CHOLESTEROL INCREASED
     Route: 048
     Dates: start: 1995
  12. LORAZEPAM. [Concomitant]
     Active Substance: LORAZEPAM
     Dosage: 0.5MG UNKNOWN
     Dates: start: 20070208
  13. AMIODARONE [Concomitant]
     Active Substance: AMIODARONE
     Dosage: 200.0MG UNKNOWN
     Dates: start: 20090330
  14. AZITHROMYCIN ANHYDROUS. [Concomitant]
     Active Substance: AZITHROMYCIN ANHYDROUS
     Dosage: 250.0MG UNKNOWN
     Dates: start: 20090514
  15. METFORMIN HCL [Concomitant]
     Active Substance: METFORMIN HYDROCHLORIDE
     Dosage: 500.0MG UNKNOWN
     Dates: start: 20110825
  16. AMARYL [Concomitant]
     Active Substance: GLIMEPIRIDE
     Dosage: 2.0MG UNKNOWN
     Dates: start: 20100809
  17. FLOMAX [Concomitant]
     Active Substance: TAMSULOSIN HYDROCHLORIDE
     Dates: start: 20120114
  18. REGLAN [Concomitant]
     Active Substance: METOCLOPRAMIDE HYDROCHLORIDE
     Dates: start: 20120114
  19. LEVAQUIN [Concomitant]
     Active Substance: LEVOFLOXACIN
     Dates: start: 20120114
  20. ALTACE [Concomitant]
     Active Substance: RAMIPRIL
  21. ASPIRIN. [Concomitant]
     Active Substance: ASPIRIN
     Dosage: 81.0MG UNKNOWN
     Dates: start: 2005
  22. DOCUSATE SODIUM. [Concomitant]
     Active Substance: DOCUSATE SODIUM
     Dosage: 250.0MG UNKNOWN
     Dates: start: 20070208
  23. CYCLOBENZAPRINE HCL [Concomitant]
     Active Substance: CYCLOBENZAPRINE HYDROCHLORIDE
     Dosage: 10.0MG UNKNOWN
     Dates: start: 20070814
  24. NAPROXEN. [Concomitant]
     Active Substance: NAPROXEN
     Dosage: 250.0MG UNKNOWN
     Dates: start: 20070814
  25. TYLENOL [Concomitant]
     Active Substance: ACETAMINOPHEN
     Dates: start: 20120114
  26. CIPROFLOXACIN. [Concomitant]
     Active Substance: CIPROFLOXACIN
     Dosage: 500.0MG UNKNOWN
  27. CRESTOR [Suspect]
     Active Substance: ROSUVASTATIN CALCIUM
     Indication: BLOOD CHOLESTEROL INCREASED
     Dosage: 10.0MG UNKNOWN
     Route: 048
     Dates: start: 20070208
  28. OYSTER SHELL [Concomitant]
     Active Substance: OSTREA EDULIS SHELL
     Dosage: 500.0MG UNKNOWN
     Dates: start: 20070405
  29. FOSAMAX [Concomitant]
     Active Substance: ALENDRONATE SODIUM
     Dosage: 70.0MG UNKNOWN
     Dates: start: 2005
  30. METOPROLOL SUCCINATE. [Concomitant]
     Active Substance: METOPROLOL SUCCINATE
     Dosage: 25.0MG UNKNOWN
     Dates: start: 20070208
  31. VICODIN [Concomitant]
     Active Substance: ACETAMINOPHEN\HYDROCODONE BITARTRATE
     Dosage: 5-500 MG
     Dates: start: 20070208
  32. BENAZEPRIL HCL/LOTENSIN [Concomitant]
     Dosage: 200.0MG UNKNOWN
     Dates: start: 20090501
  33. LYRICA [Concomitant]
     Active Substance: PREGABALIN
     Dates: start: 20120114
  34. METOLAZONE. [Concomitant]
     Active Substance: METOLAZONE
  35. FUROSEMIDE/LASIX [Concomitant]
     Dosage: 40.0MG UNKNOWN
     Dates: start: 20070208
  36. DIGOXIN. [Concomitant]
     Active Substance: DIGOXIN
     Dates: start: 201106
  37. KLOR-CON [Concomitant]
     Active Substance: POTASSIUM CHLORIDE
     Dosage: 8.0MEQ UNKNOWN
     Dates: start: 20070208
  38. RANITIDINE HCL [Concomitant]
     Active Substance: RANITIDINE HYDROCHLORIDE
     Dosage: 150.0MG UNKNOWN
     Dates: start: 20070208
  39. MORPHINE SULFATE. [Concomitant]
     Active Substance: MORPHINE SULFATE
     Dosage: 5.0MG UNKNOWN
     Dates: start: 20070212
  40. SIMVASTATIN. [Concomitant]
     Active Substance: SIMVASTATIN
     Dosage: 20.0MG UNKNOWN
     Dates: start: 20080228
  41. DILTIAZEM [Concomitant]
     Active Substance: DILTIAZEM
     Dosage: 180.0MG UNKNOWN
     Dates: start: 20090330
  42. BACLOFEN. [Concomitant]
     Active Substance: BACLOFEN
     Dosage: 10.0MG UNKNOWN
     Dates: start: 20090713
  43. ULTRAM [Concomitant]
     Active Substance: TRAMADOL HYDROCHLORIDE
     Dates: start: 20120114
  44. AMLODIPINE BESYLATE. [Concomitant]
     Active Substance: AMLODIPINE BESYLATE
     Dosage: 2.5MG UNKNOWN
     Route: 048
  45. CRESTOR [Suspect]
     Active Substance: ROSUVASTATIN CALCIUM
     Indication: BLOOD CHOLESTEROL INCREASED
     Dosage: 10.0MG UNKNOWN
     Route: 048
     Dates: start: 20110825
  46. LIPITOR [Concomitant]
     Active Substance: ATORVASTATIN CALCIUM
     Dates: start: 2011
  47. WARFARIN SODIUM. [Concomitant]
     Active Substance: WARFARIN SODIUM
     Dosage: 10.0MG UNKNOWN
     Dates: start: 20070208
  48. PLAVIX [Concomitant]
     Active Substance: CLOPIDOGREL BISULFATE
     Dates: start: 201106
  49. PROTONIX [Concomitant]
     Active Substance: PANTOPRAZOLE SODIUM
     Dosage: 40.0MG UNKNOWN
     Dates: start: 20110602
  50. ACTONEL [Concomitant]
     Active Substance: RISEDRONATE SODIUM
     Dosage: 35.0MG UNKNOWN
     Dates: start: 20070307
  51. METOPROLOL TARTRATE/LOPRESSOR [Concomitant]
     Dosage: 25.0MG UNKNOWN
     Dates: start: 20081107
  52. LOMOTIL [Concomitant]
     Active Substance: ATROPINE SULFATE\DIPHENOXYLATE HYDROCHLORIDE
     Dates: start: 20120114
  53. JANUVIA [Concomitant]
     Active Substance: SITAGLIPTIN PHOSPHATE
     Dosage: 50.0MG UNKNOWN
     Dates: start: 20101109
  54. PLETAL [Concomitant]
     Active Substance: CILOSTAZOL
     Dates: start: 20100809
  55. PRANDIN [Concomitant]
     Active Substance: REPAGLINIDE
     Dates: start: 20120114

REACTIONS (10)
  - Myocardial infarction [Unknown]
  - Diabetes mellitus [Unknown]
  - Blood triglycerides increased [Unknown]
  - Diabetic nephropathy [Unknown]
  - Arrhythmia [Unknown]
  - Labile hypertension [Unknown]
  - Gastric pH decreased [Unknown]
  - Type 2 diabetes mellitus [Not Recovered/Not Resolved]
  - Diabetic neuropathy [Unknown]
  - Arteriosclerosis coronary artery [Unknown]

NARRATIVE: CASE EVENT DATE: 2001
